FAERS Safety Report 15378218 (Version 3)
Quarter: 2018Q3

REPORT INFORMATION
  Report Type: Spontaneous
  Country: AU (occurrence: AU)
  Receive Date: 20180913
  Receipt Date: 20180920
  Transmission Date: 20181010
  Serious: Yes (Life-Threatening, Other)
  Sender: FDA-Public Use
  Company Number: AU-PFIZER INC-2018366726

PATIENT
  Age: 63 Year
  Sex: Female

DRUGS (2)
  1. XELJANZ [Suspect]
     Active Substance: TOFACITINIB CITRATE
     Dosage: UNK
  2. MELOXICAM. [Concomitant]
     Active Substance: MELOXICAM
     Dosage: UNK

REACTIONS (13)
  - Drug hypersensitivity [Recovering/Resolving]
  - Lupus-like syndrome [Recovering/Resolving]
  - Malaise [Unknown]
  - Drug effect incomplete [Unknown]
  - Erythema [Recovered/Resolved]
  - Depressed mood [Recovering/Resolving]
  - Asthma [Unknown]
  - Lung disorder [Recovering/Resolving]
  - Rash [Recovered/Resolved]
  - Localised infection [Recovering/Resolving]
  - Cardiac disorder [Unknown]
  - Dyspnoea [Recovering/Resolving]
  - Fatigue [Unknown]
